FAERS Safety Report 18299140 (Version 1)
Quarter: 2020Q3

REPORT INFORMATION
  Report Type: Spontaneous
  Country: US (occurrence: US)
  Receive Date: 20200923
  Receipt Date: 20200923
  Transmission Date: 20201103
  Serious: No
  Sender: FDA-Public Use
  Company Number: US-ALVOGEN-2020-ALVOGEN-113637

PATIENT
  Age: 48 Year
  Sex: Female

DRUGS (5)
  1. LINACLOTIDE [Concomitant]
     Active Substance: LINACLOTIDE
     Indication: PRODUCT USED FOR UNKNOWN INDICATION
     Route: 065
  2. TRAMADOL. [Concomitant]
     Active Substance: TRAMADOL
     Indication: PRODUCT USED FOR UNKNOWN INDICATION
     Route: 065
  3. PANTOPRAZOLE [Concomitant]
     Active Substance: PANTOPRAZOLE
     Indication: PRODUCT USED FOR UNKNOWN INDICATION
     Route: 065
  4. MONTELUKAST [Concomitant]
     Active Substance: MONTELUKAST SODIUM
     Indication: PRODUCT USED FOR UNKNOWN INDICATION
     Route: 065
  5. GRALISE [Suspect]
     Active Substance: GABAPENTIN
     Indication: ENDOMETRIOSIS
     Dosage: 1200 MG, QD
     Route: 048

REACTIONS (3)
  - Product use in unapproved indication [Unknown]
  - Product dose omission issue [Unknown]
  - Drug titration error [Unknown]

NARRATIVE: CASE EVENT DATE: 20200220
